FAERS Safety Report 7716558-0 (Version None)
Quarter: 2011Q3

REPORT INFORMATION
  Report Type: 
  Country: None (occurrence: None)
  Receive Date: 20110829
  Receipt Date: 20110824
  Transmission Date: 20111222
  Serious: Yes (Death)
  Sender: FDA-Public Use
  Company Number: DK-ASTRAZENECA-2011SE50577

PATIENT
  Age: 45 Year
  Sex: Female

DRUGS (6)
  1. SALICYLIC ACID [Suspect]
  2. KETOBEMIDONE [Suspect]
  3. CODEINE [Suspect]
  4. QUETIAPINE [Suspect]
     Route: 048
  5. LEVOMEPROMAZINE [Suspect]
  6. AMLODIPINE [Suspect]

REACTIONS (1)
  - DEATH [None]
